FAERS Safety Report 9159776 (Version 7)
Quarter: 2013Q2

REPORT INFORMATION
  Report Type: Report from Study
  Country: US (occurrence: US)
  Receive Date: 20130313
  Receipt Date: 20130620
  Transmission Date: 20140414
  Serious: Yes (Hospitalization)
  Sender: FDA-Public Use
  Company Number: US-VERTEX PHARMACEUTICALS INC.-2013-003390

PATIENT
  Age: 53 Year
  Sex: Male
  Weight: 99 kg

DRUGS (6)
  1. VX-950 (TELAPREVIR) [Suspect]
     Indication: HEPATITIS C
     Dosage: 750 MG, TID
     Route: 048
     Dates: start: 20130301, end: 20130517
  2. RIBAVIRIN [Suspect]
     Indication: HEPATITIS C
     Dosage: 600 MG, BID
     Route: 048
     Dates: start: 20130301
  3. RIBAVIRIN [Suspect]
     Dosage: UNK
  4. PEGASYS [Suspect]
     Indication: HEPATITIS C
     Dosage: 180 ?G, QW
     Route: 058
     Dates: start: 20130301
  5. ATENOLOL [Concomitant]
     Indication: HYPERTENSION
  6. LEVOTHYROXINE [Concomitant]
     Indication: HYPOTHYROIDISM

REACTIONS (20)
  - Anaemia [Not Recovered/Not Resolved]
  - Drug dose omission [Recovered/Resolved]
  - Inappropriate schedule of drug administration [Recovered/Resolved]
  - Photophobia [Not Recovered/Not Resolved]
  - Decreased appetite [Not Recovered/Not Resolved]
  - Weight decreased [Not Recovered/Not Resolved]
  - Somnolence [Not Recovered/Not Resolved]
  - Dry mouth [Not Recovered/Not Resolved]
  - Fatigue [Not Recovered/Not Resolved]
  - Asthenia [Not Recovered/Not Resolved]
  - Rash [Not Recovered/Not Resolved]
  - Erythema [Recovered/Resolved]
  - Blood uric acid increased [Recovered/Resolved]
  - Proctalgia [Recovered/Resolved]
  - Proctitis [Recovered/Resolved]
  - Anorectal discomfort [Recovered/Resolved]
  - Anal pruritus [Recovered/Resolved]
  - Pruritus generalised [Not Recovered/Not Resolved]
  - Dysgeusia [Not Recovered/Not Resolved]
  - Nausea [Not Recovered/Not Resolved]
